FAERS Safety Report 6390783-6 (Version None)
Quarter: 2009Q4

REPORT INFORMATION
  Report Type: 
  Country: None (occurrence: None)
  Receive Date: 20091001
  Receipt Date: 20090806
  Transmission Date: 20100525
  Serious: No
  Sender: FDA-Public Use
  Company Number: 1000008020

PATIENT
  Age: 75 Year
  Sex: Female

DRUGS (6)
  1. BYSTOLIC [Suspect]
     Indication: HYPERTENSION
     Dosage: 5 MG (5 MG,1 IN 1 D) ,ORAL
     Route: 048
     Dates: start: 20090401, end: 20090501
  2. BYSTOLIC [Suspect]
     Indication: HYPERTENSION
     Dosage: 10 MG (10 MG,1 IN 1 D),ORAL
     Route: 048
     Dates: start: 20090501, end: 20090529
  3. DIOVAN HCT [Concomitant]
  4. METFORMIN [Concomitant]
  5. LOTREL [Concomitant]
  6. ASPIRIN [Concomitant]

REACTIONS (1)
  - RASH PRURITIC [None]
